FAERS Safety Report 24341606 (Version 1)
Quarter: 2024Q3

REPORT INFORMATION
  Report Type: Spontaneous
  Country: US (occurrence: US)
  Receive Date: 20240920
  Receipt Date: 20240920
  Transmission Date: 20241017
  Serious: Yes (Other)
  Sender: SANOFI AVENTIS
  Company Number: US-SA-2024SA271119

PATIENT
  Sex: Female

DRUGS (1)
  1. PLAVIX [Suspect]
     Active Substance: CLOPIDOGREL BISULFATE
     Indication: Thrombosis
     Dosage: UNK

REACTIONS (12)
  - Thrombosis [Unknown]
  - Gastrointestinal haemorrhage [Unknown]
  - Melaena [Unknown]
  - Pain in extremity [Unknown]
  - Peripheral swelling [Unknown]
  - Skin discolouration [Unknown]
  - Fatigue [Unknown]
  - Hypoacusis [Unknown]
  - Contusion [Unknown]
  - Hypotension [Unknown]
  - Dizziness [Unknown]
  - Eye haemorrhage [Unknown]
